FAERS Safety Report 5394677-4 (Version None)
Quarter: 2007Q3

REPORT INFORMATION
  Report Type: 
  Country: None (occurrence: None)
  Receive Date: 20070723
  Receipt Date: 20070711
  Transmission Date: 20080115
  Serious: Yes (Hospitalization)
  Sender: FDA-Public Use
  Company Number: JP-PFIZER INC-2002099510JP

PATIENT
  Age: 53 Year
  Sex: Female

DRUGS (3)
  1. HALCION [Suspect]
     Indication: INSOMNIA
     Route: 048
  2. LUDIOMIL [Suspect]
     Route: 048
  3. DEPAS [Suspect]
     Route: 048

REACTIONS (4)
  - BLISTER [None]
  - COMA [None]
  - OVERDOSE [None]
  - SKIN ULCER [None]
